FAERS Safety Report 10262761 (Version 1)
Quarter: 2014Q2

REPORT INFORMATION
  Report Type: Spontaneous
  Country: SG (occurrence: SG)
  Receive Date: 20140626
  Receipt Date: 20140626
  Transmission Date: 20141212
  Serious: Yes (Hospitalization, Other)
  Sender: FDA-Public Use
  Company Number: SG-ACTAVIS-2014-14271

PATIENT
  Age: 60 Year
  Sex: Male

DRUGS (2)
  1. ACETYLSALICYLIC ACID (UNKNOWN) [Suspect]
     Indication: ATRIAL FIBRILLATION
     Dosage: UNKNOWN
     Route: 065
  2. CLOPIDOGREL BISULFATE (UNKNOWN) [Suspect]
     Indication: ATRIAL FIBRILLATION
     Dosage: UNKNOWN
     Route: 065

REACTIONS (2)
  - Spinal epidural haematoma [Recovered/Resolved]
  - Bleeding time prolonged [Unknown]
